FAERS Safety Report 8885265 (Version 1)
Quarter: 2012Q4

REPORT INFORMATION
  Report Type: 
  Country: US (occurrence: US)
  Receive Date: 20121102
  Receipt Date: 20121102
  Transmission Date: 20130627
  Serious: No
  Sender: FDA-Public Use
  Company Number: US-PFIZER INC-2012267017

PATIENT
  Sex: Female
  Weight: 63.49 kg

DRUGS (1)
  1. AMLODIPINE BESILATE [Suspect]
     Indication: BLOOD PRESSURE HIGH
     Dosage: 2.5 mg, UNK

REACTIONS (1)
  - Urticaria [Unknown]
